FAERS Safety Report 9353141 (Version 1)
Quarter: 2013Q2

REPORT INFORMATION
  Report Type: Spontaneous
  Country: US (occurrence: None)
  Receive Date: 20130617
  Receipt Date: 20130617
  Transmission Date: 20140414
  Serious: No
  Sender: FDA-Public Use
  Company Number: None

PATIENT
  Age: 69 Year
  Sex: Female

DRUGS (2)
  1. METHOTREXATE [Suspect]
     Indication: RHEUMATOID ARTHRITIS
     Dosage: METHOTREXATE WEEKLY 20 MG ORAL X } 10 YEARS
     Route: 048
  2. HUMIRA [Suspect]
     Dosage: HUMIRA 40 MG SQ Q2WEEKS SINCE 07/20.
     Route: 058
     Dates: start: 201111

REACTIONS (1)
  - Non-Hodgkin^s lymphoma [None]
